FAERS Safety Report 6697749-7 (Version None)
Quarter: 2010Q2

REPORT INFORMATION
  Report Type: 
  Country: None (occurrence: None)
  Receive Date: 20100423
  Receipt Date: 20100408
  Transmission Date: 20101027
  Serious: Yes (Hospitalization)
  Sender: FDA-Public Use
  Company Number: 2010001327

PATIENT
  Age: 48 Year
  Sex: Male

DRUGS (4)
  1. ERLOTINIB HYDROCHLORIDE [Suspect]
     Indication: SQUAMOUS CELL CARCINOMA
     Dosage: (150 MG,QD), ORAL
     Route: 048
     Dates: start: 20100101, end: 20100311
  2. ERLOTINIB HYDROCHLORIDE [Suspect]
     Indication: TONSIL CANCER
     Dosage: (150 MG,QD), ORAL
     Route: 048
     Dates: start: 20100101, end: 20100311
  3. CISPLATIN [Suspect]
     Indication: SQUAMOUS CELL CARCINOMA
     Dosage: (100 MG/M2,Q3W), INTRAVENOUS
     Route: 042
     Dates: start: 20100126
  4. CISPLATIN [Suspect]
     Indication: TONSIL CANCER
     Dosage: (100 MG/M2,Q3W), INTRAVENOUS
     Route: 042
     Dates: start: 20100126

REACTIONS (9)
  - ANAEMIA [None]
  - BLOOD ALKALINE PHOSPHATASE INCREASED [None]
  - BLOOD SODIUM DECREASED [None]
  - DEHYDRATION [None]
  - HYPOMAGNESAEMIA [None]
  - NAUSEA [None]
  - PLATELET COUNT DECREASED [None]
  - VOMITING [None]
  - WHITE BLOOD CELL COUNT DECREASED [None]
